FAERS Safety Report 13908451 (Version 1)
Quarter: 2017Q3

REPORT INFORMATION
  Report Type: Spontaneous
  Country: PL (occurrence: PL)
  Receive Date: 20170826
  Receipt Date: 20170826
  Transmission Date: 20171127
  Serious: Yes (Death)
  Sender: FDA-Public Use
  Company Number: PL-AMGEN-POLSP2017128270

PATIENT
  Age: 88 Year
  Sex: Male
  Weight: 63 kg

DRUGS (12)
  1. REFASTIN [Concomitant]
     Dosage: UNK
  2. PRADAXA [Concomitant]
     Active Substance: DABIGATRAN ETEXILATE MESYLATE
     Dosage: UNK
  3. PPI [Concomitant]
     Active Substance: UNSPECIFIED INGREDIENT
     Dosage: 20 UNK, UNK
  4. VASCOTAZIN [Concomitant]
     Dosage: UNK
  5. CORYOL [Concomitant]
     Active Substance: CARVEDILOL
     Dosage: 6.25 MG, UNK
  6. TANYZ ERAS [Concomitant]
     Dosage: UNK
  7. GLUCOSE 5% BRAUN [Concomitant]
     Dosage: UNK
  8. NONPRES [Concomitant]
     Dosage: UNK
  9. DIGOXIN TEVA [Concomitant]
     Dosage: UNK
  10. OPTILYTE [Concomitant]
  11. FRAGMIN [Concomitant]
     Active Substance: DALTEPARIN SODIUM
     Dosage: UNK
  12. REPATHA [Suspect]
     Active Substance: EVOLOCUMAB
     Indication: PRODUCT USED FOR UNKNOWN INDICATION
     Dosage: 140 MG, Q2WK
     Route: 058
     Dates: start: 201510, end: 20170317

REACTIONS (1)
  - Metastatic neoplasm [Fatal]

NARRATIVE: CASE EVENT DATE: 2016
